FAERS Safety Report 5417828-1 (Version None)
Quarter: 2007Q3

REPORT INFORMATION
  Report Type: 
  Country: None (occurrence: None)
  Receive Date: 20070815
  Receipt Date: 20070807
  Transmission Date: 20080115
  Serious: Yes (Hospitalization)
  Sender: FDA-Public Use
  Company Number: 163-21880-06080464

PATIENT
  Age: 64 Year
  Sex: Male

DRUGS (10)
  1. REVLIMID [Suspect]
     Dosage: 2.5 MG, 1 IN 2 D, ORAL; 5 MG, 1 IN 1 D, ORAL, 10 MG, 1 IN 1 D, ORAL
     Route: 048
     Dates: start: 20060804, end: 20060822
  2. REVLIMID [Suspect]
     Dosage: 2.5 MG, 1 IN 2 D, ORAL; 5 MG, 1 IN 1 D, ORAL, 10 MG, 1 IN 1 D, ORAL
     Route: 048
     Dates: start: 20060929, end: 20061012
  3. REVLIMID [Suspect]
     Dosage: 2.5 MG, 1 IN 2 D, ORAL; 5 MG, 1 IN 1 D, ORAL, 10 MG, 1 IN 1 D, ORAL
     Route: 048
     Dates: start: 20070404
  4. MELPHALAN (MELPHALAN) [Concomitant]
  5. DEXAMETHASONE TAB [Concomitant]
  6. ZOMETA [Concomitant]
  7. PLAVIX [Concomitant]
  8. PEPCID AC [Concomitant]
  9. CIPRO [Concomitant]
  10. ALLOPURINOL [Concomitant]

REACTIONS (15)
  - ABDOMINAL PAIN [None]
  - ANOREXIA [None]
  - BACK PAIN [None]
  - DEHYDRATION [None]
  - DRUG INTOLERANCE [None]
  - DYSGEUSIA [None]
  - DYSPNOEA [None]
  - FATIGUE [None]
  - HEART RATE IRREGULAR [None]
  - HYPERTENSION [None]
  - MELAENA [None]
  - MUSCLE SPASMS [None]
  - PYREXIA [None]
  - SYNCOPE [None]
  - TREMOR [None]
